FAERS Safety Report 21343149 (Version 1)
Quarter: 2022Q3

REPORT INFORMATION
  Report Type: Spontaneous
  Country: CA (occurrence: CA)
  Receive Date: 20220916
  Receipt Date: 20220916
  Transmission Date: 20221027
  Serious: Yes (Other)
  Sender: FDA-Public Use
  Company Number: CA-PFIZER INC-202200201840

PATIENT
  Age: 25 Year
  Sex: Male
  Weight: 97 kg

DRUGS (5)
  1. XELJANZ [Suspect]
     Active Substance: TOFACITINIB CITRATE
     Indication: Colitis ulcerative
     Dosage: 10 MG,2X/DAY, FOR 16 WEEKS
     Route: 048
     Dates: start: 20211209
  2. XELJANZ [Suspect]
     Active Substance: TOFACITINIB CITRATE
     Dosage: 5 MG, 2X/DAY
     Route: 048
  3. XELJANZ [Suspect]
     Active Substance: TOFACITINIB CITRATE
     Dosage: 5 MG, 2X/DAY
     Route: 048
  4. XELJANZ [Suspect]
     Active Substance: TOFACITINIB CITRATE
     Dosage: 10 MG, 2X/DAY
     Route: 048
     Dates: start: 20220615, end: 202209
  5. PENTASA [Concomitant]
     Active Substance: MESALAMINE
     Dosage: 1 DF DOSAGE INFO IS NOT AVAILABLE
     Route: 054

REACTIONS (11)
  - Colitis ulcerative [Not Recovered/Not Resolved]
  - Haematochezia [Unknown]
  - Drug ineffective [Unknown]
  - Defaecation urgency [Unknown]
  - Defaecation disorder [Unknown]
  - Abnormal faeces [Unknown]
  - COVID-19 [Recovered/Resolved]
  - Product dispensing error [Unknown]
  - Diarrhoea [Unknown]
  - Frequent bowel movements [Unknown]
  - Malaise [Unknown]

NARRATIVE: CASE EVENT DATE: 20220101
